FAERS Safety Report 8161141-9 (Version None)
Quarter: 2012Q1

REPORT INFORMATION
  Report Type: 
  Country: None (occurrence: None)
  Receive Date: 20120224
  Receipt Date: 20120222
  Transmission Date: 20120608
  Serious: Yes (Other)
  Sender: FDA-Public Use
  Company Number: US-PFIZER INC-2012047183

PATIENT
  Sex: Male
  Weight: 74.83 kg

DRUGS (3)
  1. TAMSULOSIN [Concomitant]
     Indication: PROSTATE CANCER
     Dosage: 0.4 MG, UNK
  2. TOVIAZ [Suspect]
     Indication: BLADDER DISORDER
     Dosage: 8 MG, DAILY
     Dates: start: 20120221
  3. LISINOPRIL [Concomitant]
     Indication: BLOOD PRESSURE ABNORMAL
     Dosage: 40 MG, DAILY

REACTIONS (1)
  - DYSURIA [None]
